FAERS Safety Report 8618978-9 (Version None)
Quarter: 2012Q3

REPORT INFORMATION
  Report Type: 
  Country: None (occurrence: None)
  Receive Date: 20120824
  Receipt Date: 20120820
  Transmission Date: 20120928
  Serious: Yes (Other)
  Sender: FDA-Public Use
  Company Number: PHEH2012US015958

PATIENT
  Sex: Female
  Weight: 82 kg

DRUGS (1)
  1. TASIGNA [Suspect]
     Indication: CHRONIC MYELOID LEUKAEMIA
     Dosage: 300 MG, BID
     Route: 048
     Dates: start: 20120808, end: 20120813

REACTIONS (9)
  - ABDOMINAL PAIN UPPER [None]
  - DYSPEPSIA [None]
  - RASH [None]
  - KIDNEY INFECTION [None]
  - DYSPNOEA [None]
  - SKIN BURNING SENSATION [None]
  - JOINT STIFFNESS [None]
  - BACK PAIN [None]
  - ARTHRALGIA [None]
